FAERS Safety Report 10041963 (Version 2)
Quarter: 2014Q2

REPORT INFORMATION
  Report Type: Spontaneous
  Country: CZ (occurrence: CZ)
  Receive Date: 20140327
  Receipt Date: 20140402
  Transmission Date: 20141212
  Serious: Yes (Life-Threatening, Hospitalization, Disabling)
  Sender: FDA-Public Use
  Company Number: CZ-B.I. PHARMACEUTICALS,INC./RIDGEFIELD-2014-BI-13194CZ

PATIENT
  Age: 65 Year
  Sex: Male

DRUGS (3)
  1. PRADAXA [Suspect]
     Indication: THROMBOSIS PROPHYLAXIS
     Dosage: 220 MG
     Route: 048
  2. VITAMINE B12 [Concomitant]
     Indication: ACHLORHYDRIA
     Route: 065
     Dates: start: 201403
  3. VITAMINE B12 [Concomitant]
     Indication: ANAEMIA MACROCYTIC

REACTIONS (1)
  - Pulmonary embolism [Unknown]
